FAERS Safety Report 5968754-0 (Version None)
Quarter: 2008Q4

REPORT INFORMATION
  Report Type: 
  Country: None (occurrence: None)
  Receive Date: 20081125
  Receipt Date: 20081125
  Transmission Date: 20090506
  Serious: Yes (Hospitalization)
  Sender: FDA-Public Use
  Company Number: None

PATIENT
  Sex: Male
  Weight: 54.3 kg

DRUGS (6)
  1. BORTEZOMIB [Suspect]
     Indication: ACUTE LYMPHOCYTIC LEUKAEMIA
     Dosage: 1.3MG/M2/DAY  DAYS 1, 4, 8, 11 IV  (4 DOSES)
     Route: 042
     Dates: start: 20080822, end: 20080831
  2. BACTRIM [Concomitant]
  3. FLUCONAZOLE [Concomitant]
  4. MEROPENEM [Concomitant]
  5. PANTOPRAZOLE SODIUM [Concomitant]
  6. ZOFRAN [Concomitant]

REACTIONS (9)
  - ASTHENIA [None]
  - DRUG TOXICITY [None]
  - DYSKINESIA [None]
  - DYSSTASIA [None]
  - HYPOAESTHESIA [None]
  - HYPONATRAEMIA [None]
  - NEURALGIA [None]
  - PARAESTHESIA [None]
  - PERIPHERAL SENSORY NEUROPATHY [None]
